FAERS Safety Report 19935212 (Version 2)
Quarter: 2023Q1

REPORT INFORMATION
  Report Type: Other
  Country: GB (occurrence: GB)
  Receive Date: 20211009
  Receipt Date: 20230316
  Transmission Date: 20230417
  Serious: Yes (Life-Threatening, Other)
  Sender: FDA-Public Use
  Company Number: GB-GLENMARK PHARMACEUTICALS-2021GMK068187

PATIENT

DRUGS (5)
  1. MONTELUKAST SODIUM [Suspect]
     Active Substance: MONTELUKAST SODIUM
     Indication: Asthma
     Dosage: UNK
     Route: 048
     Dates: start: 20210924, end: 20210924
  2. MONTELUKAST SODIUM [Suspect]
     Active Substance: MONTELUKAST SODIUM
     Dosage: UNK
     Route: 048
     Dates: start: 20210924, end: 20210924
  3. FEXOFENADINE HYDROCHLORIDE [Concomitant]
     Active Substance: FEXOFENADINE HYDROCHLORIDE
     Indication: Ill-defined disorder
     Dosage: UNK
     Route: 065
  4. SERETIDE [Concomitant]
     Active Substance: FLUTICASONE PROPIONATE\SALMETEROL XINAFOATE
     Indication: Ill-defined disorder
     Dosage: UNK
     Route: 065
  5. ALBUTEROL SULFATE [Concomitant]
     Active Substance: ALBUTEROL SULFATE
     Indication: Ill-defined disorder
     Dosage: UNK
     Route: 065

REACTIONS (15)
  - Respiratory depression [Recovering/Resolving]
  - Adverse drug reaction [Recovering/Resolving]
  - Medication error [Unknown]
  - Mood swings [Recovered/Resolved]
  - Hyperventilation [Unknown]
  - Apnoea [Recovering/Resolving]
  - Oesophageal candidiasis [Unknown]
  - Feeling abnormal [Unknown]
  - Oropharyngeal pain [Unknown]
  - Dyspnoea [Recovering/Resolving]
  - Neuropsychiatric symptoms [Unknown]
  - Somnolence [Recovering/Resolving]
  - Tremor [Unknown]
  - Headache [Unknown]
  - Influenza like illness [Unknown]

NARRATIVE: CASE EVENT DATE: 20210924
